FAERS Safety Report 6727873-1 (Version None)
Quarter: 2010Q2

REPORT INFORMATION
  Report Type: 
  Country: None (occurrence: None)
  Receive Date: 20100517
  Receipt Date: 20100504
  Transmission Date: 20101027
  Serious: Yes (Hospitalization)
  Sender: FDA-Public Use
  Company Number: DE-ELI_LILLY_AND_COMPANY-DE201004008307

PATIENT
  Age: 65 Year
  Sex: Male

DRUGS (3)
  1. EFFIENT [Suspect]
     Indication: INFARCTION
     Dosage: 5 MG, UNKNOWN
     Route: 048
  2. SIMVASTATIN [Concomitant]
     Dosage: 40 MG, UNKNOWN
     Route: 065
  3. RAMIPRIL [Concomitant]
     Dosage: UNK, UNKNOWN
     Route: 065

REACTIONS (2)
  - CEREBROVASCULAR ACCIDENT [None]
  - HYPOAESTHESIA [None]
